FAERS Safety Report 9156609 (Version 1)
Quarter: 2013Q1

REPORT INFORMATION
  Report Type: Spontaneous
  Country: US (occurrence: None)
  Receive Date: 20130307
  Receipt Date: 20130307
  Transmission Date: 20140127
  Serious: Yes (Other)
  Sender: FDA-Public Use
  Company Number: None

PATIENT
  Age: 75 Year
  Sex: Male

DRUGS (2)
  1. XELODA [Suspect]
     Route: 048
     Dates: start: 20130218
  2. XELODA [Suspect]
     Route: 048
     Dates: start: 20130218

REACTIONS (3)
  - Diarrhoea [None]
  - Flushing [None]
  - Pain in extremity [None]
